FAERS Safety Report 8021173-8 (Version None)
Quarter: 2011Q4

REPORT INFORMATION
  Report Type: 
  Country: None (occurrence: None)
  Receive Date: 20111229
  Receipt Date: 20101201
  Transmission Date: 20120403
  Serious: Yes (Life-Threatening)
  Sender: FDA-Public Use
  Company Number: ALB-007-10-PL

PATIENT
  Age: 75 Year
  Sex: Female

DRUGS (1)
  1. ALBUMIN (HUMAN) [Suspect]
     Indication: PRODUCT USED FOR UNKNOWN INDICATION
     Dosage: 100 ML, I.V.;
     Route: 042
     Dates: start: 20101103, end: 20101103

REACTIONS (5)
  - AGITATION [None]
  - DYSPNOEA [None]
  - CHILLS [None]
  - ERYTHEMA [None]
  - PRURITUS [None]
